FAERS Safety Report 8723951 (Version 4)
Quarter: 2012Q4

REPORT INFORMATION
  Report Type: 
  Country: FR (occurrence: FR)
  Receive Date: 20120815
  Receipt Date: 20120917
  Transmission Date: 20130627
  Serious: Yes (Hospitalization)
  Sender: FDA-Public Use
  Company Number: FR-GE HEALTHCARE MEDICAL DIAGNOSTICS-VISP-NO-1208S-0337

PATIENT
  Age: 71 Year
  Sex: Male

DRUGS (12)
  1. VISIPAQUE [Suspect]
     Indication: THERAPEUTIC EMBOLISATION
     Dosage: dose not reported
     Route: 013
     Dates: start: 20120709, end: 20120709
  2. VISIPAQUE [Suspect]
     Dosage: dose not reported
     Route: 013
     Dates: start: 20120710, end: 20120710
  3. FRAXIPARINE [Concomitant]
  4. INEXIUM [Concomitant]
  5. SPECIAFOLDINE [Concomitant]
  6. FUMAFER [Concomitant]
  7. OCTREOTIDE [Concomitant]
  8. XENETIX [Concomitant]
  9. SPASFON [Concomitant]
  10. DAFALGAN [Concomitant]
  11. FORTIMEL [Concomitant]
  12. SOTALEX [Concomitant]

REACTIONS (1)
  - Vasculitis [Recovered/Resolved]
